FAERS Safety Report 7587253-6 (Version None)
Quarter: 2011Q3

REPORT INFORMATION
  Report Type: 
  Country: None (occurrence: None)
  Receive Date: 20110701
  Receipt Date: 20110627
  Transmission Date: 20111222
  Serious: Yes (Death, Other)
  Sender: FDA-Public Use
  Company Number: PHHY2011CL57182

PATIENT
  Sex: Female

DRUGS (3)
  1. FLUTAMIDE [Suspect]
     Indication: ALOPECIA
  2. FLUTAMIDE [Suspect]
     Indication: HIRSUTISM
     Dosage: 150-250 MG
  3. FLUTAMIDE [Suspect]
     Indication: ACNE

REACTIONS (3)
  - HEPATIC NECROSIS [None]
  - POST PROCEDURAL COMPLICATION [None]
  - HEPATITIS FULMINANT [None]
